FAERS Safety Report 24301149 (Version 1)
Quarter: 2024Q3

REPORT INFORMATION
  Report Type: Spontaneous
  Country: CL (occurrence: CL)
  Receive Date: 20240910
  Receipt Date: 20240910
  Transmission Date: 20241017
  Serious: Yes (Hospitalization, Other)
  Sender: BRISTOL MYERS SQUIBB
  Company Number: CL-BRISTOL-MYERS SQUIBB COMPANY-2024-142580

PATIENT
  Age: 75 Year

DRUGS (1)
  1. DEUCRAVACITINIB [Suspect]
     Active Substance: DEUCRAVACITINIB
     Indication: Psoriasis
     Dates: start: 202408

REACTIONS (3)
  - Cerebrovascular accident [Unknown]
  - Lower respiratory tract infection [Unknown]
  - Off label use [Unknown]
